FAERS Safety Report 8954348 (Version 2)
Quarter: 2012Q4

REPORT INFORMATION
  Report Type: 
  Country: NL (occurrence: NL)
  Receive Date: 20121210
  Receipt Date: 20121219
  Transmission Date: 20130627
  Serious: Yes (Other)
  Sender: FDA-Public Use
  Company Number: NL-AMGEN-NLDSP2012024644

PATIENT
  Sex: Male

DRUGS (1)
  1. PROLIA [Suspect]
     Indication: PRODUCT USED FOR UNKNOWN INDICATION
     Dosage: 60 mg, UNK

REACTIONS (4)
  - Hypocalcaemia [Unknown]
  - Muscle spasms [Unknown]
  - Paraesthesia [Unknown]
  - Laboratory test abnormal [Unknown]
